FAERS Safety Report 8398220-7 (Version None)
Quarter: 2012Q2

REPORT INFORMATION
  Report Type: 
  Country: None (occurrence: None)
  Receive Date: 20120524
  Receipt Date: 20120515
  Transmission Date: 20120825
  Serious: Yes (Other)
  Sender: FDA-Public Use
  Company Number: AUR-APL-2012-02309

PATIENT
  Age: 20 Year
  Sex: Female

DRUGS (1)
  1. TOPIRAMATE [Suspect]
     Indication: MIGRAINE

REACTIONS (4)
  - MACULOPATHY [None]
  - ANGLE CLOSURE GLAUCOMA [None]
  - CHOROIDAL EFFUSION [None]
  - TOXICITY TO VARIOUS AGENTS [None]
